FAERS Safety Report 5894969-6 (Version None)
Quarter: 2008Q3

REPORT INFORMATION
  Report Type: 
  Country: None (occurrence: None)
  Receive Date: 20080924
  Receipt Date: 20080923
  Transmission Date: 20090109
  Serious: Yes (Other)
  Sender: FDA-Public Use
  Company Number: ES-BRISTOL-MYERS SQUIBB COMPANY-14238042

PATIENT
  Age: 48 Year
  Sex: Male

DRUGS (8)
  1. ATAZANAVIR SULFATE [Suspect]
     Indication: HIV INFECTION
  2. VIREAD [Suspect]
     Indication: HIV INFECTION
  3. RITONAVIR [Suspect]
     Indication: HIV INFECTION
  4. EMTRIVA [Suspect]
     Indication: HIV INFECTION
  5. ATENOLOL [Concomitant]
  6. NELFINAVIR [Concomitant]
  7. LAMIVUDINE [Concomitant]
  8. ZIDOVUDINE [Concomitant]
     Route: 048

REACTIONS (1)
  - RENAL FAILURE ACUTE [None]
